APPROVED DRUG PRODUCT: KAZANO
Active Ingredient: ALOGLIPTIN BENZOATE; METFORMIN HYDROCHLORIDE
Strength: EQ 12.5MG BASE;500MG
Dosage Form/Route: TABLET;ORAL
Application: N203414 | Product #001
Applicant: TAKEDA PHARMACEUTICALS USA INC
Approved: Jan 25, 2013 | RLD: Yes | RS: No | Type: RX

PATENTS:
Patent 8900638 | Expires: May 24, 2029
Patent 7807689 | Expires: Jun 27, 2028

EXCLUSIVITY:
Code: M-300 | Date: Jul 27, 2026